FAERS Safety Report 5680738-9 (Version None)
Quarter: 2008Q1

REPORT INFORMATION
  Report Type: 
  Country: None (occurrence: None)
  Receive Date: 20080326
  Receipt Date: 20080326
  Transmission Date: 20080703
  Serious: No
  Sender: FDA-Public Use
  Company Number: None

PATIENT
  Age: 59 Year
  Sex: Male

DRUGS (1)
  1. VARENICLINE [Suspect]
     Indication: SMOKING CESSATION THERAPY
     Dosage: 1.0MG BID PO
     Route: 048
     Dates: start: 20070725, end: 20071130

REACTIONS (3)
  - ABNORMAL DREAMS [None]
  - FEELING ABNORMAL [None]
  - SUICIDAL IDEATION [None]
